FAERS Safety Report 7654488-3 (Version None)
Quarter: 2011Q3

REPORT INFORMATION
  Report Type: 
  Country: None (occurrence: None)
  Receive Date: 20110803
  Receipt Date: 20110725
  Transmission Date: 20111222
  Serious: Yes (Death)
  Sender: FDA-Public Use
  Company Number: CA-AMGEN-CANSP2011037549

PATIENT
  Sex: Female
  Weight: 33.56 kg

DRUGS (14)
  1. ALTACE [Concomitant]
     Route: 048
  2. PAXIL [Concomitant]
     Route: 048
  3. METOPROLOL TARTRATE [Concomitant]
  4. ACTONEL [Concomitant]
     Dosage: UNK
     Route: 048
  5. FERROUS SULFATE TAB [Concomitant]
  6. PREDNISONE [Concomitant]
  7. CELEBREX [Concomitant]
     Route: 048
  8. LASIX [Concomitant]
  9. MOBICOX [Concomitant]
     Route: 048
  10. ENBREL [Suspect]
     Indication: PRODUCT USED FOR UNKNOWN INDICATION
     Dosage: 25 MG, 2 TIMES/WK
     Route: 058
     Dates: start: 20070101
  11. ASPIRIN [Concomitant]
  12. VITAMIN B12                        /00056201/ [Concomitant]
  13. CALCIUM ACETATE [Concomitant]
  14. VITAMIN D [Concomitant]

REACTIONS (4)
  - STAPHYLOCOCCAL INFECTION [None]
  - BACTERAEMIA [None]
  - OESOPHAGEAL CARCINOMA [None]
  - ARTHRITIS BACTERIAL [None]
